FAERS Safety Report 13192735 (Version 1)
Quarter: 2017Q1

REPORT INFORMATION
  Report Type: Other
  Country: AU (occurrence: AU)
  Receive Date: 20170207
  Receipt Date: 20170207
  Transmission Date: 20170428
  Serious: Yes (Hospitalization, Other)
  Sender: FDA-Public Use
  Company Number: AU-ACTELION-A-CH2017-149247

PATIENT
  Age: 76 Year
  Sex: Female

DRUGS (7)
  1. BOSENTAN. [Suspect]
     Active Substance: BOSENTAN
     Indication: PULMONARY HYPERTENSION
     Dosage: 62.5 MG, BID
     Route: 048
  2. PREDNISONE. [Concomitant]
     Active Substance: PREDNISONE
     Dosage: 15 MG, OD
  3. CALCIUM CARBONATE. [Concomitant]
     Active Substance: CALCIUM CARBONATE
     Dosage: 600 MG, OD
  4. CHOLECALCIFEROL [Concomitant]
     Active Substance: CHOLECALCIFEROL
     Dosage: 1000 U, OD
  5. DENOSUMAB [Concomitant]
     Active Substance: DENOSUMAB
     Dosage: 60 MG, UNK
     Route: 058
  6. FUROSEMIDE. [Concomitant]
     Active Substance: FUROSEMIDE
     Dosage: 20 MG, OD
  7. ESOMEPRAZOLE [Concomitant]
     Active Substance: ESOMEPRAZOLE
     Dosage: 20 MG, OD

REACTIONS (12)
  - Iron deficiency [Recovered/Resolved]
  - Adrenal insufficiency [Unknown]
  - Oesophagitis ulcerative [Recovered/Resolved]
  - Body mass index decreased [Unknown]
  - Melaena [Recovered/Resolved]
  - Peripheral coldness [Unknown]
  - Normochromic normocytic anaemia [Recovered/Resolved]
  - Transfusion [Unknown]
  - Hypoglycaemia [Unknown]
  - Fatigue [Unknown]
  - Upper gastrointestinal haemorrhage [Recovered/Resolved]
  - Malaise [Unknown]
